FAERS Safety Report 5720354-3 (Version None)
Quarter: 2008Q2

REPORT INFORMATION
  Report Type: 
  Country: None (occurrence: None)
  Receive Date: 20080423
  Receipt Date: 20070619
  Transmission Date: 20081010
  Serious: No
  Sender: FDA-Public Use
  Company Number: 242424

PATIENT
  Age: 60 Year
  Sex: Female
  Weight: 87.1 kg

DRUGS (2)
  1. AVASTIN [Suspect]
     Indication: BREAST CANCER METASTATIC
     Dosage: 1500 MG, QOW, INTRAVENOUS
     Route: 042
     Dates: start: 20070119
  2. TAXOL [Concomitant]

REACTIONS (2)
  - DIVERTICULITIS [None]
  - INTESTINAL PERFORATION [None]
